FAERS Safety Report 25153584 (Version 3)
Quarter: 2025Q2

REPORT INFORMATION
  Report Type: Spontaneous
  Country: DE (occurrence: DE)
  Receive Date: 20250403
  Receipt Date: 20250612
  Transmission Date: 20250717
  Serious: Yes (Hospitalization)
  Sender: CELLTRION
  Company Number: DE-CELLTRION INC.-2025DE009606

PATIENT

DRUGS (5)
  1. INFLIXIMAB [Suspect]
     Active Substance: INFLIXIMAB
     Indication: Axial spondyloarthritis
     Dosage: 120 MG, EVERY 2 WEEKS
     Route: 058
     Dates: start: 20241022
  2. INFLIXIMAB [Suspect]
     Active Substance: INFLIXIMAB
     Indication: Axial spondyloarthritis
     Dosage: 400 MG, EVERY 2 WEEKS
     Route: 042
     Dates: start: 20240910, end: 20240924
  3. IBUPROFEN [Concomitant]
     Active Substance: IBUPROFEN
     Dates: start: 20240719, end: 20240830
  4. NAPROXEN [Concomitant]
     Active Substance: NAPROXEN
     Dates: start: 20241106, end: 20241126
  5. NAPROXEN [Concomitant]
     Active Substance: NAPROXEN
     Dates: start: 20241127

REACTIONS (1)
  - Osteoarthritis [Recovered/Resolved]

NARRATIVE: CASE EVENT DATE: 20241029
